FAERS Safety Report 9429497 (Version 3)
Quarter: 2013Q4

REPORT INFORMATION
  Report Type: Report from Study
  Country: US (occurrence: US)
  Receive Date: 20130730
  Receipt Date: 20131107
  Transmission Date: 20140711
  Serious: Yes (Hospitalization, Disabling, Other)
  Sender: FDA-Public Use
  Company Number: US-ACTELION-A-NJ2013-86213

PATIENT
  Age: 69 Year
  Sex: Female

DRUGS (3)
  1. TRACLEER [Suspect]
     Indication: PULMONARY ARTERIAL HYPERTENSION
     Dosage: UNK
     Route: 048
     Dates: start: 2005
  2. SILDENAFIL [Concomitant]
  3. COUMADIN [Concomitant]

REACTIONS (9)
  - Neoplasm malignant [Not Recovered/Not Resolved]
  - Aspiration pleural cavity [Unknown]
  - Lymphadenopathy [Not Recovered/Not Resolved]
  - Sepsis [Unknown]
  - Infection [Unknown]
  - Cardiac failure congestive [Not Recovered/Not Resolved]
  - Malaise [Unknown]
  - Asthenia [Unknown]
  - Pain [Unknown]
